FAERS Safety Report 6559956-3 (Version None)
Quarter: 2010Q1

REPORT INFORMATION
  Report Type: 
  Country: None (occurrence: None)
  Receive Date: 20100129
  Receipt Date: 20090917
  Transmission Date: 20100710
  Serious: No
  Sender: FDA-Public Use
  Company Number: US-ABBOTT-09P-163-0597719-00

PATIENT
  Sex: Female

DRUGS (5)
  1. HUMIRA [Suspect]
     Indication: PSORIASIS
     Dates: start: 20090818
  2. HUMIRA [Suspect]
     Indication: PSORIATIC ARTHROPATHY
  3. SYNTHROID [Concomitant]
     Indication: DRUG USE FOR UNKNOWN INDICATION
  4. ALEVE (CAPLET) [Concomitant]
     Indication: PAIN
  5. UNKNOWN PILL [Concomitant]
     Indication: DIABETES MELLITUS

REACTIONS (2)
  - PUSTULAR PSORIASIS [None]
  - SENSORY DISTURBANCE [None]
